FAERS Safety Report 12165513 (Version 2)
Quarter: 2016Q1

REPORT INFORMATION
  Report Type: Spontaneous
  Country: US (occurrence: US)
  Receive Date: 20160309
  Receipt Date: 20160328
  Transmission Date: 20160526
  Serious: No
  Sender: FDA-Public Use
  Company Number: US-PFIZER INC-2016129988

PATIENT
  Age: 71 Year
  Sex: Male
  Weight: 72 kg

DRUGS (5)
  1. EFFEXOR XR [Suspect]
     Active Substance: VENLAFAXINE HYDROCHLORIDE
     Indication: DEPRESSION
     Dosage: 75 MG, UNK
     Route: 048
     Dates: start: 201507
  2. EFFEXOR XR [Suspect]
     Active Substance: VENLAFAXINE HYDROCHLORIDE
     Dosage: 150 MG, 1X/DAY
     Route: 048
     Dates: start: 20160302
  3. RISPERIDONE. [Concomitant]
     Active Substance: RISPERIDONE
     Indication: DEMENTIA
     Dosage: 1 MG, 2X/DAY
     Dates: start: 2011
  4. ARICEPT [Concomitant]
     Active Substance: DONEPEZIL HYDROCHLORIDE
     Indication: DEMENTIA
     Dosage: 10 MG, 1X/DAY
     Route: 048
     Dates: start: 2006
  5. EFFEXOR XR [Suspect]
     Active Substance: VENLAFAXINE HYDROCHLORIDE
     Dosage: 150 MG, 1X/DAY
     Route: 048

REACTIONS (1)
  - Logorrhoea [Not Recovered/Not Resolved]

NARRATIVE: CASE EVENT DATE: 2015
